FAERS Safety Report 8209515-1 (Version None)
Quarter: 2012Q1

REPORT INFORMATION
  Report Type: 
  Country: None (occurrence: None)
  Receive Date: 20120314
  Receipt Date: 20120305
  Transmission Date: 20120608
  Serious: Yes (Other)
  Sender: FDA-Public Use
  Company Number: US-ELI_LILLY_AND_COMPANY-US201203001437

PATIENT
  Sex: Female

DRUGS (2)
  1. HUMULIN R [Suspect]
     Dosage: UNK UNK, UNKNOWN
  2. HUMALOG [Suspect]
     Indication: TYPE 2 DIABETES MELLITUS
     Dosage: 25 U, PRN
     Dates: end: 20110101

REACTIONS (5)
  - DRUG INEFFECTIVE [None]
  - DYSPNOEA [None]
  - CHRONIC OBSTRUCTIVE PULMONARY DISEASE [None]
  - BLOOD GLUCOSE INCREASED [None]
  - OBESITY [None]
